FAERS Safety Report 26207093 (Version 1)
Quarter: 2025Q4

REPORT INFORMATION
  Report Type: Report from Study
  Country: KP (occurrence: KR)
  Receive Date: 20251229
  Receipt Date: 20251229
  Transmission Date: 20260118
  Serious: Yes (Other)
  Sender: RANBAXY
  Company Number: KP-SUN PHARMACEUTICAL INDUSTRIES LTD-2025RR-543566

PATIENT
  Age: 70 Year
  Sex: Male

DRUGS (1)
  1. CARBAMAZEPINE [Suspect]
     Active Substance: CARBAMAZEPINE
     Indication: Nephropathy
     Dosage: UNK
     Route: 065

REACTIONS (1)
  - Aplasia pure red cell [Recovering/Resolving]
